FAERS Safety Report 23508911 (Version 4)
Quarter: 2024Q2

REPORT INFORMATION
  Report Type: Report from Study
  Country: US (occurrence: US)
  Receive Date: 20240209
  Receipt Date: 20240621
  Transmission Date: 20240715
  Serious: Yes (Other)
  Sender: FDA-Public Use
  Company Number: US-ABBVIE-5543123

PATIENT
  Age: 58 Year
  Sex: Male

DRUGS (6)
  1. HUMIRA [Suspect]
     Active Substance: ADALIMUMAB
     Indication: Colitis ulcerative
     Dosage: FORM STRENGTH: 40 MG
     Route: 058
     Dates: start: 20230118, end: 202402
  2. HUMIRA [Suspect]
     Active Substance: ADALIMUMAB
     Dosage: FORM STRENGTH: 40 MG
     Route: 058
  3. HUMIRA [Suspect]
     Active Substance: ADALIMUMAB
     Route: 058
  4. HUMIRA [Suspect]
     Active Substance: ADALIMUMAB
     Route: 058
     Dates: start: 202403
  5. HUMIRA [Suspect]
     Active Substance: ADALIMUMAB
     Route: 058
  6. BUDESONIDE [Concomitant]
     Active Substance: BUDESONIDE
     Indication: Coccydynia

REACTIONS (14)
  - Adenoma benign [Recovering/Resolving]
  - Colitis ulcerative [Recovered/Resolved]
  - Haemorrhage [Recovered/Resolved]
  - Abdominal pain [Recovering/Resolving]
  - Colitis ulcerative [Recovered/Resolved]
  - Gastrointestinal tract adenoma [Recovered/Resolved]
  - Coccydynia [Recovering/Resolving]
  - Myalgia [Recovering/Resolving]
  - Drug ineffective [Unknown]
  - Pain [Recovering/Resolving]
  - Arthralgia [Unknown]
  - Injection site urticaria [Recovered/Resolved]
  - Paraesthesia [Unknown]
  - Abdominal pain [Unknown]

NARRATIVE: CASE EVENT DATE: 20230101
